FAERS Safety Report 10181388 (Version 2)
Quarter: 2014Q2

REPORT INFORMATION
  Report Type: Spontaneous
  Country: US (occurrence: US)
  Receive Date: 20140519
  Receipt Date: 20140519
  Transmission Date: 20141212
  Serious: No
  Sender: FDA-Public Use
  Company Number: US-AMGEN INC.-USASP2014027776

PATIENT
  Age: 65 Year
  Sex: Female

DRUGS (7)
  1. PROLIA [Suspect]
     Indication: OSTEOPOROSIS
     Dosage: UNK
     Route: 065
  2. VYTORIN [Concomitant]
     Indication: BLOOD CHOLESTEROL INCREASED
     Dosage: 10/40MG
     Route: 048
  3. K-DUR [Concomitant]
     Indication: BLOOD POTASSIUM DECREASED
     Dosage: 20 MG, QD
     Route: 048
  4. NEXIUM                             /01479302/ [Concomitant]
     Indication: GASTROOESOPHAGEAL REFLUX DISEASE
     Dosage: 40 MG, QD
     Route: 048
  5. LAMICTAL [Concomitant]
     Indication: BIPOLAR DISORDER
     Dosage: 150 MG, BID
     Route: 048
  6. GLIMEPIRIDE [Concomitant]
     Indication: DIABETES MELLITUS
     Dosage: 2 MG, BID
     Route: 048
  7. VIIBRYD [Concomitant]
     Indication: DEPRESSION
     Dosage: 20 MG, QD

REACTIONS (4)
  - Rash maculo-papular [Not Recovered/Not Resolved]
  - Depression [Unknown]
  - Pruritus [Unknown]
  - Urticaria [Recovered/Resolved]
